FAERS Safety Report 20720487 (Version 1)
Quarter: 2022Q2

REPORT INFORMATION
  Report Type: Other
  Country: US (occurrence: None)
  Receive Date: 20220418
  Receipt Date: 20220418
  Transmission Date: 20220721
  Serious: Yes (Hospitalization)
  Sender: FDA-Public Use
  Company Number: US-ROCHE-3070940

PATIENT
  Age: 73 Year
  Sex: Male

DRUGS (1)
  1. CELLCEPT [Suspect]
     Active Substance: MYCOPHENOLATE MOFETIL
     Indication: Myasthenia gravis
     Route: 048

REACTIONS (8)
  - Off label use [Unknown]
  - Asthenia [Unknown]
  - Diplopia [Unknown]
  - Imaging procedure abnormal [Unknown]
  - Pleural effusion [Unknown]
  - Lymphadenopathy [Unknown]
  - Visual impairment [Unknown]
  - COVID-19 pneumonia [Unknown]

NARRATIVE: CASE EVENT DATE: 20220129
